FAERS Safety Report 22325515 (Version 1)
Quarter: 2023Q2

REPORT INFORMATION
  Report Type: Spontaneous
  Country: DE (occurrence: DE)
  Receive Date: 20230516
  Receipt Date: 20230516
  Transmission Date: 20230721
  Serious: Yes (Other)
  Sender: FDA-Public Use
  Company Number: DE-VIIV HEALTHCARE LIMITED-DE2023EME067818

PATIENT

DRUGS (11)
  1. DOVATO [Suspect]
     Active Substance: DOLUTEGRAVIR SODIUM\LAMIVUDINE
     Indication: HIV infection
     Dosage: UNK
     Dates: start: 202001
  2. AMPHETAMINE [Suspect]
     Active Substance: AMPHETAMINE
     Indication: Product used for unknown indication
     Dosage: UNK
  3. METHAMPHETAMINE [Suspect]
     Active Substance: METHAMPHETAMINE
     Indication: Product used for unknown indication
     Dosage: UNK
  4. MIDOMAFETAMINE [Suspect]
     Active Substance: MIDOMAFETAMINE
     Indication: Product used for unknown indication
     Dosage: UNK
  5. FLUCONAZOLE [Concomitant]
     Active Substance: FLUCONAZOLE
     Indication: Product used for unknown indication
     Dosage: 400 MG, 2X200 MG B.A.W
  6. FLUCONAZOLE [Concomitant]
     Active Substance: FLUCONAZOLE
     Dosage: 200 MG, 1X200 MG
  7. ATOVAQUONE [Concomitant]
     Active Substance: ATOVAQUONE
     Indication: Product used for unknown indication
     Dosage: UNK
     Route: 048
  8. DEXAMETHASONE [Concomitant]
     Active Substance: DEXAMETHASONE
     Indication: Product used for unknown indication
     Dosage: UNK
  9. DEXAMETHASONE [Concomitant]
     Active Substance: DEXAMETHASONE
     Dosage: 0.25 MG
  10. DEXAMETHASONE [Concomitant]
     Active Substance: DEXAMETHASONE
     Dosage: 0.125 MG
  11. PREDNISONE ACETATE [Concomitant]
     Active Substance: PREDNISONE ACETATE
     Indication: Product used for unknown indication
     Dosage: UNK

REACTIONS (11)
  - Loss of consciousness [Unknown]
  - Syphilis [Unknown]
  - Anal ulcer [Unknown]
  - Meningitis [Unknown]
  - Immune reconstitution inflammatory syndrome [Unknown]
  - Condition aggravated [Unknown]
  - Aphasia [Unknown]
  - Fatigue [Unknown]
  - Haematoma [Unknown]
  - Stab wound [Unknown]
  - Substance use [Unknown]

NARRATIVE: CASE EVENT DATE: 20200127
